FAERS Safety Report 25087542 (Version 4)
Quarter: 2025Q4

REPORT INFORMATION
  Report Type: Report from Study
  Country: CN (occurrence: CN)
  Receive Date: 20250318
  Receipt Date: 20251114
  Transmission Date: 20260118
  Serious: Yes (Other)
  Sender: ROCHE
  Company Number: CN-ROCHE-10000057767

PATIENT
  Age: 61 Year
  Sex: Female
  Weight: 55 kg

DRUGS (9)
  1. KADCYLA [Suspect]
     Active Substance: ADO-TRASTUZUMAB EMTANSINE
     Indication: Breast cancer
     Dosage: DOSE OF LAST MEDICINAL PRODUCT ADMINISTERED PRIOR TO AE ONSET: 190 MG?DATE OF MOST RECENT DOSE OF ME
     Route: 042
     Dates: start: 20240722
  2. DEXAMETHASONE SODIUM PHOSPHATE [Concomitant]
     Active Substance: DEXAMETHASONE SODIUM PHOSPHATE
     Route: 042
     Dates: start: 20240722, end: 20240722
  3. DEXAMETHASONE SODIUM PHOSPHATE [Concomitant]
     Active Substance: DEXAMETHASONE SODIUM PHOSPHATE
     Route: 042
     Dates: start: 20240812, end: 20240812
  4. DEXAMETHASONE SODIUM PHOSPHATE [Concomitant]
     Active Substance: DEXAMETHASONE SODIUM PHOSPHATE
     Route: 042
     Dates: start: 20240902, end: 20240902
  5. DEXAMETHASONE SODIUM PHOSPHATE [Concomitant]
     Active Substance: DEXAMETHASONE SODIUM PHOSPHATE
     Route: 042
     Dates: start: 20240923, end: 20240923
  6. HUMAN INTERLEUKIN-11 [Concomitant]
     Route: 058
     Dates: start: 20240820, end: 20240824
  7. GLYCYRRHIZIN CAPSULES [Concomitant]
     Dates: start: 20240923
  8. DICLOFENAC SODIUM TABLETS [Concomitant]
     Dates: start: 20240923
  9. POLYENE PHOSPHATIDYLCHOLINE CAPSULES [Concomitant]
     Dates: start: 20240923

REACTIONS (5)
  - Aspartate aminotransferase increased [Not Recovered/Not Resolved]
  - Alanine aminotransferase increased [Recovered/Resolved]
  - Platelet count decreased [Recovered/Resolved]
  - Neutrophil count decreased [Recovered/Resolved]
  - White blood cell count decreased [Recovered/Resolved]

NARRATIVE: CASE EVENT DATE: 20240812
